FAERS Safety Report 18647756 (Version 1)
Quarter: 2020Q4

REPORT INFORMATION
  Report Type: Spontaneous
  Country: US (occurrence: US)
  Receive Date: 20201222
  Receipt Date: 20201222
  Transmission Date: 20210114
  Serious: No
  Sender: FDA-Public Use
  Company Number: US-RECKITT BENCKISER HEALTHCARE INT LIMITED-RB-94156-2020

PATIENT
  Age: 17 Year
  Sex: Female
  Weight: 65.76 kg

DRUGS (2)
  1. HYDROCORTISONE. [Concomitant]
     Active Substance: HYDROCORTISONE
     Indication: PRODUCT USED FOR UNKNOWN INDICATION
     Dosage: UNK, PRN
     Route: 065
  2. DELSYM [Suspect]
     Active Substance: DEXTROMETHORPHAN
     Indication: ANXIETY
     Dosage: 30 MILLILITER, SINGLE
     Route: 048
     Dates: start: 20200918

REACTIONS (2)
  - Overdose [Unknown]
  - Product use in unapproved indication [Unknown]
